FAERS Safety Report 4824014-2 (Version None)
Quarter: 2005Q4

REPORT INFORMATION
  Report Type: 
  Country: None (occurrence: None)
  Receive Date: 20051108
  Receipt Date: 20051025
  Transmission Date: 20060501
  Serious: Yes (Other)
  Sender: FDA-Public Use
  Company Number: WAES 98091778

PATIENT
  Age: 21 Year
  Sex: Male

DRUGS (4)
  1. CRIXIVAN [Suspect]
     Indication: HIV INFECTION
     Dosage: 800 MG/TID
     Route: 048
     Dates: start: 19960729, end: 19961014
  2. KOGENATE [Concomitant]
  3. VIRACEPT [Concomitant]
  4. PENTAMIDINE ISETHIONATE [Concomitant]

REACTIONS (14)
  - ANAEMIA [None]
  - BLOOD ALKALINE PHOSPHATASE INCREASED [None]
  - BLOOD LACTATE DEHYDROGENASE INCREASED [None]
  - C-REACTIVE PROTEIN INCREASED [None]
  - HAEMATURIA [None]
  - HYPERBILIRUBINAEMIA [None]
  - NEPHROSCLEROSIS [None]
  - OEDEMA [None]
  - PYURIA [None]
  - RENAL ATROPHY [None]
  - RENAL FAILURE [None]
  - RENAL HYPERTENSION [None]
  - RENAL IMPAIRMENT [None]
  - URINARY SEDIMENT ABNORMAL [None]
